FAERS Safety Report 25839829 (Version 2)
Quarter: 2025Q4

REPORT INFORMATION
  Report Type: Report from Study
  Country: US (occurrence: US)
  Receive Date: 20250924
  Receipt Date: 20251119
  Transmission Date: 20260117
  Serious: Yes (Hospitalization, Other)
  Sender: ABBVIE
  Company Number: US-ABBVIE-6397134

PATIENT
  Age: 62 Year
  Sex: Female

DRUGS (2)
  1. CREON [Suspect]
     Active Substance: PANCRELIPASE AMYLASE\PANCRELIPASE LIPASE\PANCRELIPASE PROTEASE
     Indication: Pancreatic failure
     Route: 048
     Dates: start: 20250301
  2. CREON [Suspect]
     Active Substance: PANCRELIPASE AMYLASE\PANCRELIPASE LIPASE\PANCRELIPASE PROTEASE
     Indication: Pancreatic failure
     Dosage: 36000 DR CAPS
     Route: 048
     Dates: start: 20250618

REACTIONS (9)
  - Dyspnoea [Unknown]
  - Pancreatitis [Recovering/Resolving]
  - Fall [Recovering/Resolving]
  - Femur fracture [Recovering/Resolving]
  - Nasopharyngitis [Recovering/Resolving]
  - Sinonasal obstruction [Recovering/Resolving]
  - Headache [Recovering/Resolving]
  - Gallbladder disorder [Recovered/Resolved]
  - Sputum retention [Unknown]

NARRATIVE: CASE EVENT DATE: 20250101
